FAERS Safety Report 9271249 (Version 1)
Quarter: 2013Q2

REPORT INFORMATION
  Report Type: Spontaneous
  Country: AU (occurrence: AU)
  Receive Date: 20130506
  Receipt Date: 20130506
  Transmission Date: 20140414
  Serious: Yes (Hospitalization, Other)
  Sender: FDA-Public Use
  Company Number: AU-ELI_LILLY_AND_COMPANY-AU201304009016

PATIENT
  Age: 70 Year
  Sex: Female

DRUGS (3)
  1. ZYPREXA [Suspect]
     Dosage: 1 DF, UNKNOWN
     Route: 065
  2. ZYPREXA [Suspect]
     Dosage: 1 DF, UNKNOWN
  3. ZYPREXA [Suspect]
     Dosage: 1 DF, UNKNOWN

REACTIONS (9)
  - Myocardial infarction [Unknown]
  - Lipids [Unknown]
  - Pancreatitis [Unknown]
  - Cardiac disorder [Unknown]
  - Lung disorder [Unknown]
  - Visual impairment [Unknown]
  - Flatulence [Unknown]
  - Hernia [Unknown]
  - Abdominal distension [Unknown]
